FAERS Safety Report 5820416-6 (Version None)
Quarter: 2008Q3

REPORT INFORMATION
  Report Type: 
  Country: None (occurrence: None)
  Receive Date: 20080724
  Receipt Date: 20070712
  Transmission Date: 20090109
  Serious: No
  Sender: FDA-Public Use
  Company Number: A0663685A

PATIENT
  Age: 57 Year
  Sex: Female

DRUGS (3)
  1. AVANDIA [Suspect]
     Dosage: 2MG PER DAY
     Route: 048
     Dates: start: 20030101, end: 20070601
  2. GLUCOPHAGE [Concomitant]
  3. GLIPIZIDE [Concomitant]

REACTIONS (3)
  - MUSCLE SPASMS [None]
  - SWELLING [None]
  - WEIGHT INCREASED [None]
